FAERS Safety Report 7156432-4 (Version None)
Quarter: 2010Q4

REPORT INFORMATION
  Report Type: 
  Country: None (occurrence: None)
  Receive Date: 20101214
  Receipt Date: 20101208
  Transmission Date: 20110411
  Serious: Yes (Other)
  Sender: FDA-Public Use
  Company Number: US-ROCHE-747341

PATIENT
  Sex: Male

DRUGS (2)
  1. PEGINTERFERON ALFA-2A [Suspect]
     Indication: HEPATITIS C
     Dosage: FORM: PRE-FILLED SYRINGE; WEEK 9
     Route: 065
     Dates: start: 20101008
  2. RIBAVARIN [Suspect]
     Indication: HEPATITIS C
     Dosage: WEEK 9
     Route: 065
     Dates: start: 20101008

REACTIONS (3)
  - HAEMORRHAGE [None]
  - SENSORY DISTURBANCE [None]
  - VIITH NERVE PARALYSIS [None]
